FAERS Safety Report 4451438-8 (Version None)
Quarter: 2004Q3

REPORT INFORMATION
  Report Type: 
  Country: None (occurrence: None)
  Receive Date: 20040916
  Receipt Date: 20040906
  Transmission Date: 20050211
  Serious: Yes (Death)
  Sender: FDA-Public Use
  Company Number: GB-ROCHE-379958

PATIENT
  Age: 54 Year
  Sex: Male

DRUGS (6)
  1. TRETINOIN [Suspect]
     Indication: ACUTE MYELOID LEUKAEMIA
     Route: 065
     Dates: start: 20021015
  2. FLUDARABINE PHOSPHATE [Interacting]
     Indication: ACUTE MYELOID LEUKAEMIA
     Route: 065
     Dates: start: 20021015
  3. CYTARABINE [Interacting]
     Indication: ACUTE MYELOID LEUKAEMIA
     Route: 065
     Dates: start: 20021015
  4. VORICONAZOLE [Interacting]
     Route: 065
     Dates: start: 20020615
  5. AMBISOME [Concomitant]
  6. ITRACONAZOLE [Concomitant]

REACTIONS (12)
  - ALVEOLAR PROTEINOSIS [None]
  - ASTHENIA [None]
  - CARDIAC TAMPONADE [None]
  - DRUG INTERACTION [None]
  - FUNGAL INFECTION [None]
  - LUNG CONSOLIDATION [None]
  - NEUROPATHY PERIPHERAL [None]
  - PARAINFLUENZAE VIRUS INFECTION [None]
  - PERICARDITIS [None]
  - PLEURAL EFFUSION [None]
  - PULMONARY MYCOSIS [None]
  - PYREXIA [None]
